FAERS Safety Report 4303438-6 (Version None)
Quarter: 2004Q1

REPORT INFORMATION
  Report Type: 
  Country: None (occurrence: None)
  Receive Date: 20040223
  Receipt Date: 20040210
  Transmission Date: 20041129
  Serious: Yes (Hospitalization)
  Sender: FDA-Public Use
  Company Number: 04P-056-0250271-00

PATIENT
  Age: 58 Year
  Sex: Female

DRUGS (2)
  1. HUMIRA [Suspect]
     Indication: POLYARTHRITIS
     Dosage: 40 MG, SUBCUTANEOUS
     Route: 058
  2. OMEPRAZOLE [Concomitant]

REACTIONS (4)
  - ALANINE AMINOTRANSFERASE INCREASED [None]
  - ASPARTATE AMINOTRANSFERASE INCREASED [None]
  - BLOOD ALKALINE PHOSPHATASE INCREASED [None]
  - EYE ALLERGY [None]
